FAERS Safety Report 9199106 (Version 2)
Quarter: 2014Q4

REPORT INFORMATION
  Report Type: Spontaneous
  Country: US (occurrence: US)
  Receive Date: 20130329
  Receipt Date: 20141001
  Transmission Date: 20150529
  Serious: Yes (Hospitalization)
  Sender: FDA-Public Use
  Company Number: US-INCYTE CORPORATION-2013IN000607

PATIENT
  Age: 62 Year
  Sex: Female
  Weight: 45.35 kg

DRUGS (3)
  1. DECITABINE. [Suspect]
     Active Substance: DECITABINE
     Indication: ACUTE MYELOID LEUKAEMIA
     Dosage: 5 MG, QD 5 TIMES PER MONTH
     Route: 048
  2. JAKAFI [Suspect]
     Active Substance: RUXOLITINIB
     Indication: MYELOFIBROSIS
     Dosage: 10 MG, BID
     Route: 048
     Dates: start: 20130312, end: 20130315
  3. DECITABINE. [Suspect]
     Active Substance: DECITABINE
     Dosage: 5 MG, QD 5 TIMES PER MONTH
     Route: 048

REACTIONS (3)
  - Pulmonary oedema [Recovered/Resolved]
  - Cardiomyopathy [Unknown]
  - Cardiac failure acute [Recovered/Resolved]

NARRATIVE: CASE EVENT DATE: 20130315
